FAERS Safety Report 20803579 (Version 9)
Quarter: 2024Q2

REPORT INFORMATION
  Report Type: Spontaneous
  Country: ES (occurrence: ES)
  Receive Date: 20220509
  Receipt Date: 20240507
  Transmission Date: 20240715
  Serious: Yes (Other)
  Sender: FDA-Public Use
  Company Number: ES-OTSUKA-2022_026023

PATIENT
  Age: 57 Year
  Sex: Male

DRUGS (10)
  1. TOLVAPTAN [Suspect]
     Active Substance: TOLVAPTAN
     Indication: Congenital cystic kidney disease
     Dosage: 45 MG
     Route: 065
     Dates: start: 20190517, end: 20190611
  2. TOLVAPTAN [Suspect]
     Active Substance: TOLVAPTAN
     Dosage: 15 MG
     Route: 065
     Dates: start: 20190517, end: 20190611
  3. TOLVAPTAN [Suspect]
     Active Substance: TOLVAPTAN
     Dosage: 60 MG
     Route: 065
     Dates: start: 20190611, end: 20190907
  4. TOLVAPTAN [Suspect]
     Active Substance: TOLVAPTAN
     Dosage: 30 MG
     Route: 065
     Dates: start: 20190611, end: 20190907
  5. TOLVAPTAN [Suspect]
     Active Substance: TOLVAPTAN
     Dosage: 60 MG
     Route: 065
     Dates: start: 20191011, end: 20210903
  6. TOLVAPTAN [Suspect]
     Active Substance: TOLVAPTAN
     Dosage: 30 MG
     Route: 065
     Dates: start: 20191011, end: 20210903
  7. TOLVAPTAN [Suspect]
     Active Substance: TOLVAPTAN
     Dosage: 90 MG
     Route: 065
     Dates: start: 20210903, end: 20220530
  8. TOLVAPTAN [Suspect]
     Active Substance: TOLVAPTAN
     Dosage: 30 MG
     Route: 065
     Dates: start: 20210903, end: 20220530
  9. OMBITASVIR\PARITAPREVIR\RITONAVIR [Concomitant]
     Active Substance: OMBITASVIR\PARITAPREVIR\RITONAVIR
     Indication: Hepatitis C
     Dosage: 2 DF, QD (2 TABLETS ON BREAKFAST WITH FOOD)
     Route: 065
     Dates: start: 20160520, end: 20160811
  10. DASABUVIR [Concomitant]
     Active Substance: DASABUVIR
     Indication: Hepatitis C
     Dosage: 1 DF, BID (1 TABLET ON BREAKFAST AND 1 TABLET ON DINNER, WITH FOOD)
     Route: 065
     Dates: start: 20160520, end: 20160811

REACTIONS (6)
  - Hepatic cancer [Not Recovered/Not Resolved]
  - Hepatectomy [Recovered/Resolved]
  - Cholecystectomy [Recovered/Resolved]
  - Renal impairment [Recovered/Resolved]
  - Transaminases increased [Recovered/Resolved]
  - Polyuria [Unknown]

NARRATIVE: CASE EVENT DATE: 20210101
